FAERS Safety Report 5105210-6 (Version None)
Quarter: 2006Q3

REPORT INFORMATION
  Report Type: 
  Country: None (occurrence: None)
  Receive Date: 20060911
  Receipt Date: 20060830
  Transmission Date: 20061208
  Serious: Yes (Hospitalization)
  Sender: FDA-Public Use
  Company Number: 10823

PATIENT
  Age: 67 Year
  Sex: Male
  Weight: 104.3273 kg

DRUGS (13)
  1. FLUOROURACIL [Suspect]
     Indication: COLORECTAL CANCER
     Dosage: 400 MG/M2 FORTNIGHTLY IV
     Route: 042
     Dates: start: 20050316, end: 20050316
  2. FLUOROURACIL [Suspect]
     Indication: COLORECTAL CANCER
     Dosage: 2400 MG/M2 FORTNIGHTLY
     Dates: start: 20050316, end: 20050316
  3. LEUCOVORIN CALCIUM [Suspect]
     Indication: COLORECTAL CANCER
     Dosage: 400 MG/M2 FORTNIGHTLY
     Dates: start: 20041110
  4. LEUCOVORIN CALCIUM [Suspect]
     Indication: COLORECTAL CANCER
     Dosage: 400 MG/M2 FORTNIGHTLY IV
     Route: 042
     Dates: start: 20050316, end: 20050316
  5. OXALIPLATIN [Suspect]
     Indication: COLORECTAL CANCER
     Dosage: 85 MG/M2 FORTNIGHTLY IV
     Route: 042
     Dates: start: 20041110
  6. OXALIPLATIN [Suspect]
     Indication: COLORECTAL CANCER
     Dosage: 85 MG/M2 FORTNIGHTLY IV
     Route: 042
     Dates: start: 20050316, end: 20050316
  7. ERBITUX [Suspect]
     Indication: COLORECTAL CANCER
     Dosage: 250 MG/M2 WEEKLY IV
     Route: 042
     Dates: start: 20041110
  8. ERBITUX [Suspect]
     Indication: COLORECTAL CANCER
     Dosage: 250 MG/M2 WEEKLY IV
     Route: 042
     Dates: start: 20050323, end: 20050323
  9. LUPRON [Concomitant]
  10. BENADRYL /00000402/ [Concomitant]
  11. MELATONIN [Concomitant]
  12. BENZOYL PEROXIDE [Concomitant]
  13. FERGON [Concomitant]

REACTIONS (4)
  - DEHYDRATION [None]
  - DIARRHOEA [None]
  - DRY MOUTH [None]
  - HYPOVOLAEMIA [None]
